FAERS Safety Report 8001643-9 (Version None)
Quarter: 2011Q4

REPORT INFORMATION
  Report Type: 
  Country: None (occurrence: None)
  Receive Date: 20111222
  Receipt Date: 20111221
  Transmission Date: 20120403
  Serious: Yes (Hospitalization)
  Sender: FDA-Public Use
  Company Number: EE-ROCHE-1020606

PATIENT
  Sex: Female
  Weight: 65 kg

DRUGS (4)
  1. MEDROL [Concomitant]
  2. MABTHERA [Suspect]
     Dosage: 3RD COURSE
     Route: 042
     Dates: start: 20110307
  3. MABTHERA [Suspect]
     Indication: RHEUMATOID ARTHRITIS
     Dosage: 1ST COURSE
     Route: 042
     Dates: start: 20100217
  4. MABTHERA [Suspect]
     Dosage: 2ND COURSE
     Route: 042
     Dates: start: 20100808

REACTIONS (1)
  - COLON CANCER [None]
